FAERS Safety Report 21754420 (Version 5)
Quarter: 2023Q1

REPORT INFORMATION
  Report Type: Spontaneous
  Country: US (occurrence: US)
  Receive Date: 20221220
  Receipt Date: 20230213
  Transmission Date: 20230418
  Serious: Yes (Other)
  Sender: FDA-Public Use
  Company Number: US-PFIZER INC-202201377253

PATIENT
  Age: 80 Year
  Sex: Female
  Weight: 43.99 kg

DRUGS (1)
  1. PREMARIN [Suspect]
     Active Substance: ESTROGENS, CONJUGATED
     Dosage: UNK(EVERY TWO DAYS)

REACTIONS (8)
  - Loss of consciousness [Unknown]
  - Ankle fracture [Unknown]
  - Gait disturbance [Unknown]
  - Peripheral swelling [Recovering/Resolving]
  - Head injury [Unknown]
  - Abdominal discomfort [Unknown]
  - Headache [Unknown]
  - Intentional product misuse [Unknown]
